FAERS Safety Report 7125802-2 (Version None)
Quarter: 2010Q4

REPORT INFORMATION
  Report Type: 
  Country: None (occurrence: None)
  Receive Date: 20101129
  Receipt Date: 20101109
  Transmission Date: 20110411
  Serious: Yes (Hospitalization)
  Sender: FDA-Public Use
  Company Number: B0686284A

PATIENT
  Age: 36 Year
  Sex: Female

DRUGS (2)
  1. RANITIDINE [Suspect]
     Route: 048
  2. IBUPROFEN [Suspect]
     Route: 048

REACTIONS (5)
  - ABDOMINAL PAIN [None]
  - ABDOMINAL PAIN UPPER [None]
  - HENOCH-SCHONLEIN PURPURA [None]
  - PETECHIAE [None]
  - RECTAL HAEMORRHAGE [None]
